FAERS Safety Report 8013641-X (Version None)
Quarter: 2011Q4

REPORT INFORMATION
  Report Type: 
  Country: None (occurrence: None)
  Receive Date: 20111229
  Receipt Date: 20111228
  Transmission Date: 20120403
  Serious: Yes (Other)
  Sender: FDA-Public Use
  Company Number: FI-PFIZER INC-2011314657

PATIENT
  Sex: Female

DRUGS (1)
  1. VARENICLINE TARTRATE [Suspect]
     Indication: SMOKING CESSATION THERAPY
     Dosage: 0.5 MG, UNK
     Dates: start: 20111222, end: 20111226

REACTIONS (9)
  - VOMITING [None]
  - DYSSTASIA [None]
  - HALLUCINATION [None]
  - NAUSEA [None]
  - FEAR [None]
  - DIARRHOEA [None]
  - SUICIDAL IDEATION [None]
  - ANXIETY [None]
  - ABNORMAL DREAMS [None]
